FAERS Safety Report 9869445 (Version 1)
Quarter: 2014Q1

REPORT INFORMATION
  Report Type: Spontaneous
  Country: US (occurrence: US)
  Receive Date: 20140205
  Receipt Date: 20140205
  Transmission Date: 20141002
  Serious: No
  Sender: FDA-Public Use
  Company Number: US-PFIZER INC-2014028984

PATIENT
  Age: 47 Year
  Sex: Female
  Weight: 77.1 kg

DRUGS (8)
  1. CELEBREX [Suspect]
     Indication: NEUROPATHY PERIPHERAL
     Dosage: 100 MG, 2X/DAY
     Route: 048
     Dates: end: 20140127
  2. PERCOCET [Concomitant]
     Indication: NEUROPATHY PERIPHERAL
     Dosage: UNK
  3. SYNTHROID [Concomitant]
     Indication: HYPOTHYROIDISM
     Dosage: UNK
  4. XANAX [Concomitant]
     Dosage: UNK
  5. NEURONTIN [Concomitant]
     Dosage: 300 MG, UNK
  6. LITHIUM [Concomitant]
     Dosage: UNK
  7. DOXEPIN [Concomitant]
     Dosage: UNK
  8. PRILOSEC [Concomitant]
     Dosage: UNK

REACTIONS (2)
  - Off label use [Unknown]
  - Blood glucose increased [Unknown]
